FAERS Safety Report 13234091 (Version 4)
Quarter: 2017Q1

REPORT INFORMATION
  Report Type: Spontaneous
  Country: US (occurrence: US)
  Receive Date: 20170215
  Receipt Date: 20170328
  Transmission Date: 20170428
  Serious: Yes (Hospitalization)
  Sender: FDA-Public Use
  Company Number: US-THE MEDICINES COMPANY-US-MDCO-17-00060

PATIENT
  Age: 70 Year
  Sex: Male
  Weight: 151.95 kg

DRUGS (3)
  1. ORBACTIV [Suspect]
     Active Substance: ORITAVANCIN
     Indication: CELLULITIS
     Route: 041
     Dates: start: 20170127
  2. XARELTO [Concomitant]
     Active Substance: RIVAROXABAN
     Indication: DEEP VEIN THROMBOSIS
     Dosage: NOT REPORTED
  3. ORBACTIV [Suspect]
     Active Substance: ORITAVANCIN
     Route: 041
     Dates: start: 20170206, end: 20170206

REACTIONS (14)
  - Heparin-induced thrombocytopenia test positive [Recovering/Resolving]
  - Nausea [Recovered/Resolved]
  - Anaphylactic reaction [Recovered/Resolved]
  - Deep vein thrombosis [Unknown]
  - Chills [Recovered/Resolved]
  - Respiratory failure [Recovering/Resolving]
  - Dizziness [Recovered/Resolved]
  - Off label use [Unknown]
  - Suspected transmission of an infectious agent via product [Unknown]
  - Hypokalaemia [Unknown]
  - Shock [Unknown]
  - Sepsis [Unknown]
  - Thrombocytopenia [Recovering/Resolving]
  - Pyrexia [Recovered/Resolved]

NARRATIVE: CASE EVENT DATE: 20170206
